FAERS Safety Report 8080612-7 (Version None)
Quarter: 2012Q1

REPORT INFORMATION
  Report Type: 
  Country: None (occurrence: None)
  Receive Date: 20120130
  Receipt Date: 20120123
  Transmission Date: 20120608
  Serious: Yes (Other)
  Sender: FDA-Public Use
  Company Number: CH-TEVA-319214ISR

PATIENT
  Age: 83 Year
  Sex: Female

DRUGS (2)
  1. LAMOTRIGINE [Suspect]
     Indication: GRAND MAL CONVULSION
     Dosage: 200 MILLIGRAM;
     Route: 048
  2. KEPPRA [Concomitant]
     Indication: GRAND MAL CONVULSION
     Dosage: 750 MILLIGRAM;
     Route: 048

REACTIONS (1)
  - LYMPHOCYTIC LEUKAEMIA [None]
